FAERS Safety Report 5915829-8 (Version None)
Quarter: 2008Q4

REPORT INFORMATION
  Report Type: 
  Country: None (occurrence: None)
  Receive Date: 20081010
  Receipt Date: 20080929
  Transmission Date: 20090506
  Serious: Yes (Death, Life-Threatening)
  Sender: FDA-Public Use
  Company Number: GB-PFIZER INC-2008082253

PATIENT
  Age: 56 Year
  Sex: Male

DRUGS (7)
  1. SUTENT [Suspect]
     Route: 048
     Dates: start: 20080803, end: 20080831
  2. AMITRIPTYLINE HCL [Concomitant]
     Indication: PAIN
     Route: 048
  3. CLINDAMYCIN HCL [Concomitant]
     Indication: OSTEOMYELITIS
     Route: 048
  4. FLUCONAZOLE [Concomitant]
     Dates: start: 20080718
  5. OMEPRAZOLE [Concomitant]
     Route: 048
  6. PREGABALIN [Concomitant]
  7. FUSIDATE SODIUM [Concomitant]
     Indication: OSTEOMYELITIS
     Route: 048

REACTIONS (1)
  - PULMONARY OEDEMA [None]
